FAERS Safety Report 10472460 (Version 2)
Quarter: 2014Q3

REPORT INFORMATION
  Report Type: Spontaneous
  Country: DK (occurrence: DK)
  Receive Date: 20140924
  Receipt Date: 20140924
  Transmission Date: 20150326
  Serious: Yes (Life-Threatening, Hospitalization)
  Sender: FDA-Public Use
  Company Number: DK-JNJFOC-20130403153

PATIENT
  Age: 17 Year
  Sex: Female
  Weight: 60 kg

DRUGS (2)
  1. THYCAPZOL [Concomitant]
     Active Substance: METHIMAZOLE
     Indication: HYPERTHYROIDISM
     Route: 065
  2. NORETHINDRONE AND ETHINYL ESTRADIOL [Suspect]
     Active Substance: ETHINYL ESTRADIOL\NORETHINDRONE
     Indication: CONTRACEPTION
     Dosage: 250+35 MICROGRAM
     Route: 048
     Dates: start: 201205, end: 20130301

REACTIONS (8)
  - Electrocardiogram P wave abnormal [Unknown]
  - Chest pain [Unknown]
  - Lung infection [Unknown]
  - Pulmonary embolism [Recovering/Resolving]
  - Palpitations [Unknown]
  - Pain [Unknown]
  - Pyrexia [Unknown]
  - Basedow^s disease [Unknown]

NARRATIVE: CASE EVENT DATE: 201210
